FAERS Safety Report 7591205-X (Version None)
Quarter: 2011Q3

REPORT INFORMATION
  Report Type: 
  Country: None (occurrence: None)
  Receive Date: 20110706
  Receipt Date: 20110627
  Transmission Date: 20111222
  Serious: Yes (Hospitalization)
  Sender: FDA-Public Use
  Company Number: US-BIOGENIDEC-2010BI045161

PATIENT
  Age: 39 Year
  Sex: Female

DRUGS (8)
  1. CALCIUM WITH VITAMIN D [Concomitant]
     Indication: OSTEOPENIA
  2. ORAL CONTRACEPTIVE [Concomitant]
  3. MACROBID [Concomitant]
     Indication: PROPHYLAXIS URINARY TRACT INFECTION
  4. NOVOLOG [Concomitant]
     Indication: TYPE 1 DIABETES MELLITUS
     Route: 058
  5. LANTUS [Concomitant]
     Indication: TYPE 1 DIABETES MELLITUS
     Route: 058
  6. TYSABRI [Suspect]
     Indication: MULTIPLE SCLEROSIS
     Route: 042
     Dates: start: 20090713
  7. AMPYRA [Concomitant]
  8. LISINOPRIL [Concomitant]

REACTIONS (7)
  - COMMINUTED FRACTURE [None]
  - CONSTIPATION [None]
  - URINARY TRACT INFECTION [None]
  - PAIN [None]
  - ANAEMIA [None]
  - MULTIPLE SCLEROSIS [None]
  - DRUG INEFFECTIVE [None]
